FAERS Safety Report 19667391 (Version 1)
Quarter: 2021Q3

REPORT INFORMATION
  Report Type: Spontaneous
  Country: IL (occurrence: IL)
  Receive Date: 20210806
  Receipt Date: 20210806
  Transmission Date: 20211014
  Serious: Yes (Other)
  Sender: FDA-Public Use
  Company Number: IL-ROCHE-2883535

PATIENT
  Age: 51 Year
  Sex: Female

DRUGS (1)
  1. ALECTINIB. [Suspect]
     Active Substance: ALECTINIB
     Indication: LUNG NEOPLASM MALIGNANT
     Route: 065
     Dates: start: 20210125

REACTIONS (5)
  - Myalgia [Unknown]
  - Constipation [Unknown]
  - Chest pain [Unknown]
  - Fatigue [Unknown]
  - Vision blurred [Unknown]
